FAERS Safety Report 8849117 (Version 1)
Quarter: 2012Q4

REPORT INFORMATION
  Report Type: Report from Study
  Country: CA (occurrence: CA)
  Receive Date: 20121019
  Receipt Date: 20121019
  Transmission Date: 20130627
  Serious: Yes (Other)
  Sender: FDA-Public Use
  Company Number: CA-JNJFOC-20121007491

PATIENT
  Age: 23 Year
  Sex: Male
  Weight: 79 kg

DRUGS (6)
  1. REMICADE [Suspect]
     Indication: CROHN^S DISEASE
     Dosage: 8th infusion
     Route: 042
     Dates: start: 20121010, end: 20121010
  2. REMICADE [Suspect]
     Indication: CROHN^S DISEASE
     Route: 042
     Dates: start: 201109
  3. BENADRYL [Suspect]
     Indication: MALAISE
     Route: 042
     Dates: start: 20121010
  4. BENADRYL [Suspect]
     Indication: FLUSHING
     Route: 042
     Dates: start: 20121010
  5. ENTOCORT [Concomitant]
     Route: 065
  6. IMURAN [Concomitant]
     Route: 048

REACTIONS (5)
  - Vomiting [Recovered/Resolved]
  - Infusion related reaction [Recovered/Resolved]
  - Chills [Recovered/Resolved]
  - Malaise [Recovered/Resolved]
  - Flushing [Recovered/Resolved]
